FAERS Safety Report 5078782-8 (Version None)
Quarter: 2006Q3

REPORT INFORMATION
  Report Type: 
  Country: None (occurrence: None)
  Receive Date: 20060814
  Receipt Date: 20060704
  Transmission Date: 20061208
  Serious: Yes (Other)
  Sender: FDA-Public Use
  Company Number: CA-BAYER-200612839GDS

PATIENT
  Age: 82 Year
  Sex: Male
  Weight: 65 kg

DRUGS (13)
  1. AVELOX [Suspect]
     Indication: PNEUMONIA
     Dosage: TOTAL DAILY DOSE: 400 MG  UNIT DOSE: 400 MG
     Route: 042
     Dates: start: 20060212, end: 20060212
  2. AVELOX [Suspect]
     Route: 048
     Dates: start: 20060213, end: 20060219
  3. ACEBUTOLOL HYDROCHLORIDE [Concomitant]
     Indication: DRUG USE FOR UNKNOWN INDICATION
     Dosage: TOTAL DAILY DOSE: 200 MG  UNIT DOSE: 200 MG
     Route: 048
     Dates: start: 20060212
  4. DALTEPARIN SODIUM [Concomitant]
     Indication: DRUG USE FOR UNKNOWN INDICATION
     Dosage: TOTAL DAILY DOSE: 13000 U  UNIT DOSE: 13000 U
     Route: 058
     Dates: start: 20060212
  5. DILTIAZEM CD [Concomitant]
     Indication: DRUG USE FOR UNKNOWN INDICATION
     Dosage: TOTAL DAILY DOSE: 120 MG  UNIT DOSE: 120 MG
     Route: 048
     Dates: start: 20060212
  6. DIMENHYDRINATE [Concomitant]
     Indication: DRUG USE FOR UNKNOWN INDICATION
     Route: 042
     Dates: start: 20060212
  7. DIMENHYDRINATE [Concomitant]
     Route: 042
     Dates: start: 20060212
  8. LORAZEPAM [Concomitant]
     Indication: DRUG USE FOR UNKNOWN INDICATION
     Route: 048
     Dates: start: 20060212
  9. LOSARTAN POSTASSIUM [Concomitant]
     Indication: DRUG USE FOR UNKNOWN INDICATION
     Route: 048
     Dates: start: 20060212
  10. MORPHINE [Concomitant]
     Indication: DRUG USE FOR UNKNOWN INDICATION
     Route: 042
     Dates: start: 20060212
  11. MORPHINE [Concomitant]
     Route: 042
     Dates: start: 20060212
  12. PARIET [Concomitant]
     Indication: DRUG USE FOR UNKNOWN INDICATION
     Dosage: TOTAL DAILY DOSE: 10 MG  UNIT DOSE: 10 MG
     Route: 048
     Dates: start: 20060212
  13. PERCOCET [Concomitant]
     Indication: DRUG USE FOR UNKNOWN INDICATION
     Route: 048
     Dates: start: 20060212

REACTIONS (4)
  - ERYTHEMA MULTIFORME [None]
  - RASH GENERALISED [None]
  - STEVENS-JOHNSON SYNDROME [None]
  - STOMATITIS [None]
